FAERS Safety Report 6253915-6 (Version None)
Quarter: 2009Q3

REPORT INFORMATION
  Report Type: 
  Country: None (occurrence: None)
  Receive Date: 20090701
  Receipt Date: 20090701
  Transmission Date: 20100115
  Serious: Yes (Life-Threatening, Hospitalization)
  Sender: FDA-Public Use
  Company Number: None

PATIENT
  Sex: Male

DRUGS (2)
  1. LISINOPRIL [Suspect]
     Indication: ATRIAL FIBRILLATION
     Dosage: 10MG ONCE QD ORAL
     Route: 048
     Dates: start: 20010101
  2. LISINOPRIL [Suspect]
     Indication: HYPERTENSION
     Dosage: 10MG ONCE QD ORAL
     Route: 048
     Dates: start: 20010101

REACTIONS (1)
  - HEART RATE IRREGULAR [None]
